FAERS Safety Report 4643645-6 (Version None)
Quarter: 2005Q2

REPORT INFORMATION
  Report Type: 
  Country: None (occurrence: None)
  Receive Date: 20050425
  Receipt Date: 20041210
  Transmission Date: 20051028
  Serious: Yes (Life-Threatening, Hospitalization, Other)
  Sender: FDA-Public Use
  Company Number: PHFR2004GB04550

PATIENT
  Age: 31 Year
  Sex: Female

DRUGS (5)
  1. CLOZARIL [Suspect]
     Indication: SCHIZOPHRENIA
     Dosage: 200MG/MANE 400MG/NOCTE
     Route: 048
     Dates: start: 20020226, end: 20041207
  2. CLOZARIL [Suspect]
     Dates: start: 20021110
  3. CLOZARIL [Suspect]
     Dosage: 70X100MG OVERDOSE
     Route: 048
  4. LORAZEPAM [Concomitant]
     Indication: AGITATION
     Dosage: UNK, UNK
     Route: 048
     Dates: start: 20020626, end: 20041207
  5. ZOPICLONE [Concomitant]
     Indication: SLEEP DISORDER
     Dosage: 7.5MG
     Route: 048
     Dates: start: 20020626, end: 20041207

REACTIONS (14)
  - AGGRESSION [None]
  - BLOOD PH DECREASED [None]
  - CONFUSIONAL STATE [None]
  - CONVULSION [None]
  - COUGH [None]
  - CREPITATIONS [None]
  - GLASGOW COMA SCALE ABNORMAL [None]
  - HALLUCINATION [None]
  - HYPOKALAEMIC SYNDROME [None]
  - INCONTINENCE [None]
  - MUSCLE TWITCHING [None]
  - OVERDOSE [None]
  - SALIVARY HYPERSECRETION [None]
  - TACHYCARDIA [None]
